FAERS Safety Report 10995649 (Version 2)
Quarter: 2015Q2

REPORT INFORMATION
  Report Type: Spontaneous
  Country: JP (occurrence: JP)
  Receive Date: 20150407
  Receipt Date: 20150501
  Transmission Date: 20150821
  Serious: Yes (Life-Threatening, Other)
  Sender: FDA-Public Use
  Company Number: JP-CELGENE-JPN-2015040679

PATIENT
  Age: 68 Year
  Sex: Female

DRUGS (14)
  1. ABRAXANE [Suspect]
     Active Substance: PACLITAXEL
     Indication: BREAST CANCER METASTATIC
     Dosage: 260 MILLIGRAM
     Route: 041
     Dates: start: 20140723
  2. CLINDAMYCIN [Concomitant]
     Active Substance: CLINDAMYCIN\CLINDAMYCIN PHOSPHATE
     Indication: ANTIBIOTIC THERAPY
     Route: 065
     Dates: start: 20141017, end: 20141028
  3. FAMOTIDINE. [Concomitant]
     Active Substance: FAMOTIDINE
     Indication: GASTRITIS
     Route: 048
     Dates: start: 201404, end: 20141011
  4. CALCICOL [Concomitant]
     Active Substance: CALCIUM GLUCONATE
     Indication: HYPOCALCAEMIA
     Route: 065
     Dates: start: 20141012
  5. SEDEKOPAN [Concomitant]
     Indication: PRODUCT USED FOR UNKNOWN INDICATION
     Route: 065
     Dates: start: 20141114
  6. FENTOS [Concomitant]
     Active Substance: FENTANYL
     Indication: CANCER PAIN
     Route: 048
     Dates: start: 201404, end: 20141011
  7. QUETIAPINE [Concomitant]
     Active Substance: QUETIAPINE
     Indication: INSOMNIA
     Dosage: 2 MILLIGRAM
     Route: 065
     Dates: start: 20141011
  8. LOXOPROFEN SODIUM HYDRATE [Concomitant]
     Active Substance: LOXOPROFEN SODIUM DIHYDRATE
     Indication: PAIN IN EXTREMITY
  9. MIYA-BM [Concomitant]
     Active Substance: CLOSTRIDIUM BUTYRICUM SPORES STRAIN M-55
     Indication: CONSTIPATION PROPHYLAXIS
     Route: 048
     Dates: start: 201404, end: 20141011
  10. LOXOPROFEN SODIUM HYDRATE [Concomitant]
     Active Substance: LOXOPROFEN SODIUM DIHYDRATE
     Indication: BREAST PAIN
     Route: 048
     Dates: start: 20140425
  11. QUETIAPINE [Concomitant]
     Active Substance: QUETIAPINE
     Route: 065
     Dates: start: 20141114
  12. LIASOPHIN [Concomitant]
     Indication: ANTIBIOTIC THERAPY
     Route: 065
     Dates: start: 20141017
  13. FENTOS [Concomitant]
     Active Substance: FENTANYL
     Indication: PAIN IN EXTREMITY
  14. MYSLEE [Concomitant]
     Active Substance: ZOLPIDEM TARTRATE
     Indication: INSOMNIA
     Route: 065
     Dates: start: 20141011

REACTIONS (5)
  - Febrile neutropenia [Recovered/Resolved with Sequelae]
  - Malaise [Unknown]
  - Disseminated intravascular coagulation [Recovering/Resolving]
  - Septic shock [Recovered/Resolved with Sequelae]
  - Decreased appetite [Recovering/Resolving]

NARRATIVE: CASE EVENT DATE: 20141011
